FAERS Safety Report 13277243 (Version 1)
Quarter: 2017Q1

REPORT INFORMATION
  Report Type: Spontaneous
  Country: US (occurrence: US)
  Receive Date: 20170228
  Receipt Date: 20170228
  Transmission Date: 20170428
  Serious: Yes (Hospitalization, Other)
  Sender: FDA-Public Use
  Company Number: US-PFIZER INC-2016205938

PATIENT
  Sex: Female

DRUGS (7)
  1. LEVOTHYROXINE. [Concomitant]
     Active Substance: LEVOTHYROXINE
     Indication: THYROID DISORDER
     Dosage: 50 UG, 1X/DAY
  2. LYRICA [Suspect]
     Active Substance: PREGABALIN
     Indication: POLYMYALGIA RHEUMATICA
     Dosage: 150 MG, 3X/DAY (TWO CAPSULES EACH DAY THREE TIMES A DAY WITH EACH MEAL)(SIX CAPSULES A DAY)
     Route: 048
  3. PREDNISONE. [Concomitant]
     Active Substance: PREDNISONE
     Indication: POLYMYALGIA RHEUMATICA
     Dosage: 10 MG, 2X/DAY
  4. HYDROCODONE [Concomitant]
     Active Substance: HYDROCODONE
     Dosage: UNK
  5. LYRICA [Suspect]
     Active Substance: PREGABALIN
     Dosage: 75 MG, 3X/DAY
     Route: 048
  6. PREDNISONE. [Concomitant]
     Active Substance: PREDNISONE
     Indication: OSTEOARTHRITIS
  7. SYNTHROID [Concomitant]
     Active Substance: LEVOTHYROXINE SODIUM
     Dosage: UNK

REACTIONS (9)
  - Hypoaesthesia [Unknown]
  - Urinary tract infection [Unknown]
  - Bladder prolapse [Unknown]
  - Muscle twitching [Recovered/Resolved]
  - Type 2 diabetes mellitus [Unknown]
  - Weight decreased [Unknown]
  - Dyskinesia [Recovered/Resolved]
  - Product use issue [Unknown]
  - Malaise [Unknown]
